FAERS Safety Report 25712813 (Version 2)
Quarter: 2025Q3

REPORT INFORMATION
  Report Type: Spontaneous
  Country: EG (occurrence: EG)
  Receive Date: 20250821
  Receipt Date: 20250905
  Transmission Date: 20251020
  Serious: Yes (Hospitalization, Other)
  Sender: NOVO NORDISK
  Company Number: EG-NOVOPROD-1501240

PATIENT
  Age: 779 Month
  Sex: Female
  Weight: 95 kg

DRUGS (10)
  1. INSULIN HUMAN [Suspect]
     Active Substance: INSULIN HUMAN
     Indication: Diabetes mellitus
     Dosage: 60 IU, QD(35U AT MORNING AND 25U AT NIGHT)
     Route: 058
  2. INSULIN HUMAN [Suspect]
     Active Substance: INSULIN HUMAN
     Dosage: 85 IU, QD(OF 35 U AT MORNING ,LUNCH THE PATIENT HAD 25 UAND 25 U AT NIGHT
     Route: 058
  3. EPIMAG [Concomitant]
     Indication: Gout
  4. TORSEMIDE [Concomitant]
     Active Substance: TORSEMIDE
     Indication: Diuretic therapy
     Route: 048
  5. .ALPHA.-LIPOIC ACID [Concomitant]
     Active Substance: .ALPHA.-LIPOIC ACID
     Indication: Nervous system disorder
     Route: 048
  6. PLAVIX [Concomitant]
     Active Substance: CLOPIDOGREL BISULFATE
     Indication: Anticoagulant therapy
     Route: 048
  7. NEXIUM I.V. [Concomitant]
     Active Substance: ESOMEPRAZOLE SODIUM
     Indication: Gastrointestinal disorder
  8. DIMRA [Concomitant]
     Indication: Hypotonia
     Dosage: 0.5 MG, BID(0.5 U AT MORNING AND 0.5 U AT NIGHT)
  9. ANALLERGE [Concomitant]
     Indication: Urticaria
  10. URIDIN [Concomitant]
     Route: 048

REACTIONS (2)
  - Cardiac operation [Recovered/Resolved]
  - Dementia Alzheimer^s type [Not Recovered/Not Resolved]

NARRATIVE: CASE EVENT DATE: 20220501
